FAERS Safety Report 14280752 (Version 6)
Quarter: 2019Q4

REPORT INFORMATION
  Report Type: Report from Study
  Country: IT (occurrence: IT)
  Receive Date: 20171213
  Receipt Date: 20191028
  Transmission Date: 20200122
  Serious: Yes (Other)
  Sender: FDA-Public Use
  Company Number: PHHY2017IT150357

PATIENT
  Age: 67 Year
  Sex: Female

DRUGS (4)
  1. MESAVANCOL [Concomitant]
     Active Substance: MESALAMINE
     Indication: GASTROINTESTINAL DISORDER
     Dosage: 1200 MG, TID
     Route: 065
     Dates: start: 20170222, end: 20170315
  2. NORMIX [Concomitant]
     Active Substance: RIFAXIMIN
     Indication: PRODUCT USED FOR UNKNOWN INDICATION
     Dosage: 2 DF, QW
     Route: 065
     Dates: start: 201709
  3. COSENTYX [Suspect]
     Active Substance: SECUKINUMAB
     Dosage: 300 MG, EVERY 28 DAYS
     Route: 058
  4. COSENTYX [Suspect]
     Active Substance: SECUKINUMAB
     Indication: PSORIASIS
     Dosage: 150 MG, TWICE DAILY, EVERY 4 WEEKS
     Route: 058
     Dates: start: 20161222

REACTIONS (14)
  - Weight decreased [Unknown]
  - Cough [Unknown]
  - Nasal mucosal disorder [Unknown]
  - Abdominal pain [Unknown]
  - Stenosis [Unknown]
  - Psoriasis [Unknown]
  - Constipation [Unknown]
  - Mucosal erosion [Unknown]
  - Skin lesion [Unknown]
  - Inflammatory bowel disease [Unknown]
  - Nervousness [Unknown]
  - Intertrigo [Unknown]
  - Diverticulitis [Unknown]
  - Gastrointestinal haemorrhage [Unknown]

NARRATIVE: CASE EVENT DATE: 201705
